FAERS Safety Report 10897512 (Version 1)
Quarter: 2015Q1

REPORT INFORMATION
  Report Type: Spontaneous
  Country: US (occurrence: None)
  Receive Date: 20150302
  Receipt Date: 20150302
  Transmission Date: 20150721
  Serious: Yes (Hospitalization)
  Sender: FDA-Public Use
  Company Number: None

PATIENT
  Age: 57 Year
  Sex: Female
  Weight: 90.5 kg

DRUGS (3)
  1. CYCLOPHOSPHAMIDE. [Suspect]
     Active Substance: CYCLOPHOSPHAMIDE
     Dates: end: 20150202
  2. METHOTREXATE [Suspect]
     Active Substance: METHOTREXATE
     Dates: end: 20150209
  3. CYTARABINE. [Suspect]
     Active Substance: CYTARABINE
     Dates: end: 20150212

REACTIONS (6)
  - Intussusception [None]
  - Oesophagitis [None]
  - Abdominal pain [None]
  - Asthenia [None]
  - Nausea [None]
  - Lipoma [None]

NARRATIVE: CASE EVENT DATE: 20150212
